FAERS Safety Report 24774830 (Version 1)
Quarter: 2024Q4

REPORT INFORMATION
  Report Type: Spontaneous
  Country: US (occurrence: US)
  Receive Date: 20241226
  Receipt Date: 20241226
  Transmission Date: 20250115
  Serious: Yes (Hospitalization)
  Sender: EMCURE PHARMACEUTICALS LTD
  Company Number: US-AVET LIFESCIENCES LTD-2024-AVET-000475

PATIENT
  Age: 34 Year
  Sex: Male

DRUGS (3)
  1. VERAPAMIL HYDROCHLORIDE [Suspect]
     Active Substance: VERAPAMIL HYDROCHLORIDE
     Indication: Hypertrophic cardiomyopathy
     Dosage: 180 MILLIGRAM, BID INCREASED DOSE
  2. VERAPAMIL HYDROCHLORIDE [Suspect]
     Active Substance: VERAPAMIL HYDROCHLORIDE
     Dosage: 60 MILLIGRAM, BID REDUCED DOSE
  3. METOPROLOL SUCCINATE [Concomitant]
     Active Substance: METOPROLOL SUCCINATE
     Dosage: 50 MILLIGRAM, BID

REACTIONS (1)
  - Toxicity to various agents [Unknown]
